FAERS Safety Report 6272721-X (Version None)
Quarter: 2009Q3

REPORT INFORMATION
  Report Type: 
  Country: None (occurrence: None)
  Receive Date: 20090717
  Receipt Date: 20090712
  Transmission Date: 20100115
  Serious: Yes (Other)
  Sender: FDA-Public Use
  Company Number: PHHY2009BR28586

PATIENT
  Sex: Male

DRUGS (4)
  1. TRILEPTAL [Suspect]
     Indication: EPILEPSY
     Dosage: 600 MG/ 1 TABLET PER DAY
     Route: 048
  2. TRILEPTAL [Suspect]
     Dosage: 300 MG/HALF TABLET 2 TIMES PER DAY
     Route: 048
  3. TOPAMAX [Concomitant]
     Dosage: 100 MG, 1 TABLET
     Route: 048
  4. TOPAMAX [Concomitant]
     Dosage: 25 MG 1 TABLET/2 TIMES PER DAY
     Route: 048

REACTIONS (1)
  - PETIT MAL EPILEPSY [None]
